FAERS Safety Report 22031936 (Version 1)
Quarter: 2023Q1

REPORT INFORMATION
  Report Type: Report from Study
  Country: GB (occurrence: GB)
  Receive Date: 20230224
  Receipt Date: 20230224
  Transmission Date: 20230417
  Serious: Yes (Other)
  Sender: FDA-Public Use
  Company Number: GB-ABBVIE-4317662

PATIENT
  Sex: Male

DRUGS (2)
  1. CARBIDOPA\LEVODOPA [Suspect]
     Active Substance: CARBIDOPA\LEVODOPA
     Indication: Parkinson^s disease
     Dosage: MD: 3.0; CR: 3.8 AND ED: 2.2
     Route: 050
     Dates: start: 2023
  2. CARBIDOPA\LEVODOPA [Suspect]
     Active Substance: CARBIDOPA\LEVODOPA
     Dosage: 20MGS/5MGS; MD: 3.0; CR: 3.6 AND ED: 2.2
     Route: 050
     Dates: end: 2023

REACTIONS (3)
  - Metastases to peritoneum [Unknown]
  - Dyskinesia [Unknown]
  - Palliative care [Unknown]

NARRATIVE: CASE EVENT DATE: 20230101
